FAERS Safety Report 26044343 (Version 1)
Quarter: 2025Q4

REPORT INFORMATION
  Report Type: Spontaneous
  Country: SG (occurrence: SG)
  Receive Date: 20251114
  Receipt Date: 20251114
  Transmission Date: 20260118
  Serious: Yes (Hospitalization)
  Sender: ROCHE
  Company Number: SG-ROCHE-10000434663

PATIENT
  Age: 79 Year
  Sex: Female

DRUGS (2)
  1. TRASTUZUMAB [Suspect]
     Active Substance: TRASTUZUMAB
     Indication: Invasive ductal breast carcinoma
     Route: 065
  2. METHYLPREDNISOLONE [Concomitant]
     Active Substance: METHYLPREDNISOLONE
     Dosage: MAINTENANCE IV-MP WAS INITIATED AT 1G WEEKLY FOR 12?CONSECUTIVE WEEKS, FOLLOWED BY 2-WEEKLY, AND THE
     Route: 065

REACTIONS (1)
  - Paraneoplastic neurological syndrome [Unknown]
